FAERS Safety Report 14225698 (Version 1)
Quarter: 2017Q4

REPORT INFORMATION
  Report Type: Spontaneous
  Country: US (occurrence: US)
  Receive Date: 20171127
  Receipt Date: 20171127
  Transmission Date: 20180321
  Serious: Yes (Other)
  Sender: FDA-Public Use
  Company Number: US-TEVA-2017-US-826688

PATIENT
  Age: 10 Year
  Sex: Male
  Weight: 124.85 kg

DRUGS (1)
  1. RISPERIDONE. [Suspect]
     Active Substance: RISPERIDONE
     Dates: start: 2016

REACTIONS (4)
  - Gynaecomastia [Not Recovered/Not Resolved]
  - Weight increased [Not Recovered/Not Resolved]
  - Hormone level abnormal [Not Recovered/Not Resolved]
  - Galactorrhoea [Not Recovered/Not Resolved]
